FAERS Safety Report 5167479-1 (Version None)
Quarter: 2006Q4

REPORT INFORMATION
  Report Type: 
  Country: None (occurrence: None)
  Receive Date: 20061130
  Receipt Date: 20061116
  Transmission Date: 20070319
  Serious: Yes (Death)
  Sender: FDA-Public Use
  Company Number: 15201

PATIENT
  Age: 75 Year
  Sex: Female
  Weight: 77.6 kg

DRUGS (9)
  1. METHOTREXATE [Suspect]
     Indication: RHEUMATOID ARTHRITIS
  2. REMICADE [Suspect]
     Indication: RHEUMATOID ARTHRITIS
     Dosage: 3 MG/KG IV
     Route: 042
     Dates: start: 20010423, end: 20041201
  3. ADCAL-D3 [Concomitant]
  4. CLARITHROMYCIN [Concomitant]
  5. ETHAMBUTOL HYDROCHLORIDE [Concomitant]
  6. MS CONTIN [Concomitant]
  7. PREDNISOLONE [Concomitant]
  8. RIFAMPICIN [Concomitant]
  9. STREPTOMYCIN [Concomitant]

REACTIONS (3)
  - MYCOBACTERIUM AVIUM COMPLEX INFECTION [None]
  - PULMONARY FIBROSIS [None]
  - RESPIRATORY FAILURE [None]
